FAERS Safety Report 7737538-5 (Version None)
Quarter: 2011Q3

REPORT INFORMATION
  Report Type: 
  Country: None (occurrence: None)
  Receive Date: 20110902
  Receipt Date: 20110824
  Transmission Date: 20111222
  Serious: Yes (Other)
  Sender: FDA-Public Use
  Company Number: 2011MA012554

PATIENT
  Age: 75 Year
  Sex: Female

DRUGS (1)
  1. PRAMIPEXOLE DIHYDROCHLORIDE [Suspect]

REACTIONS (6)
  - PARKINSON'S DISEASE [None]
  - DELIRIUM [None]
  - HYPONATRAEMIA [None]
  - ASTHENIA [None]
  - INAPPROPRIATE ANTIDIURETIC HORMONE SECRETION [None]
  - CONDITION AGGRAVATED [None]
